FAERS Safety Report 7298390-8 (Version None)
Quarter: 2011Q1

REPORT INFORMATION
  Report Type: 
  Country: None (occurrence: None)
  Receive Date: 20110217
  Receipt Date: 20100525
  Transmission Date: 20110831
  Serious: No
  Sender: FDA-Public Use
  Company Number: US-PFIZER INC-2010054531

PATIENT
  Sex: Male

DRUGS (5)
  1. LASIX [Concomitant]
     Indication: RENAL DISORDER
     Dosage: UNK
  2. CORDARONE [Concomitant]
     Indication: CARDIAC DISORDER
     Dosage: UNK
  3. LANOXIN [Concomitant]
     Indication: CARDIAC DISORDER
     Dosage: UNK
  4. NEXIUM [Concomitant]
     Indication: ABDOMINAL DISCOMFORT
     Dosage: UNK
  5. XALATAN [Suspect]
     Indication: GLAUCOMA
     Dosage: UNK
     Dates: start: 20090101

REACTIONS (2)
  - EYE PAIN [None]
  - EYE IRRITATION [None]
